FAERS Safety Report 9368828 (Version 2)
Quarter: 2013Q4

REPORT INFORMATION
  Report Type: Report from Study
  Country: CO (occurrence: CO)
  Receive Date: 20130626
  Receipt Date: 20131121
  Transmission Date: 20140711
  Serious: Yes (Other)
  Sender: FDA-Public Use
  Company Number: CO-ROCHE-1241140

PATIENT
  Sex: Male

DRUGS (2)
  1. RANIBIZUMAB [Suspect]
     Indication: MACULAR DEGENERATION
     Route: 050
     Dates: start: 20130418
  2. LOSARTAN [Concomitant]

REACTIONS (3)
  - Glaucoma [Recovering/Resolving]
  - Pyrexia [Unknown]
  - Influenza [Unknown]
